FAERS Safety Report 25776291 (Version 1)
Quarter: 2025Q3

REPORT INFORMATION
  Report Type: Spontaneous
  Country: US (occurrence: US)
  Receive Date: 20250909
  Receipt Date: 20250909
  Transmission Date: 20251021
  Serious: No
  Sender: DOMPE FARMACEUTICI
  Company Number: US-FARMAPROD-202408-2998

PATIENT
  Sex: Male

DRUGS (8)
  1. OXERVATE [Suspect]
     Active Substance: CENEGERMIN-BKBJ
     Indication: Neurotrophic keratopathy
     Route: 047
     Dates: start: 20240816
  2. ASPIRIN [Concomitant]
     Active Substance: ASPIRIN
  3. FAMOTIDINE [Concomitant]
     Active Substance: FAMOTIDINE
  4. ROSUVASTATIN CALCIUM [Concomitant]
     Active Substance: ROSUVASTATIN CALCIUM
  5. CARVEDILOL [Concomitant]
     Active Substance: CARVEDILOL
  6. AMLODIPINE BESYLATE [Concomitant]
     Active Substance: AMLODIPINE BESYLATE
  7. VALSARTAN [Concomitant]
     Active Substance: VALSARTAN
  8. RYBELSUS [Concomitant]
     Active Substance: SEMAGLUTIDE

REACTIONS (2)
  - Vision blurred [Not Recovered/Not Resolved]
  - Skin burning sensation [Unknown]
